FAERS Safety Report 6902394-1 (Version None)
Quarter: 2010Q3

REPORT INFORMATION
  Report Type: 
  Country: None (occurrence: None)
  Receive Date: 20100803
  Receipt Date: 20080520
  Transmission Date: 20110219
  Serious: No
  Sender: FDA-Public Use
  Company Number: US-PFIZER INC-2008043614

PATIENT
  Sex: Female

DRUGS (3)
  1. LYRICA [Suspect]
     Indication: BACK PAIN
     Dates: start: 20080508
  2. LYRICA [Suspect]
     Indication: HOT FLUSH
  3. DRUG, UNSPECIFIED [Concomitant]

REACTIONS (2)
  - BALANCE DISORDER [None]
  - SOMNOLENCE [None]
